FAERS Safety Report 5143804-2 (Version None)
Quarter: 2006Q4

REPORT INFORMATION
  Report Type: 
  Country: None (occurrence: None)
  Receive Date: 20061030
  Receipt Date: 20061017
  Transmission Date: 20070319
  Serious: Yes (Other)
  Sender: FDA-Public Use
  Company Number: 2006127336

PATIENT
  Sex: Female

DRUGS (4)
  1. LYRICA [Suspect]
     Indication: FIBROMYALGIA
  2. CLONAZEPAM [Concomitant]
  3. MYOLASTAN (TETRAZEPAM) [Concomitant]
  4. AMITRIPTYLINE HYDROCHLORIDE [Concomitant]

REACTIONS (4)
  - AGITATION [None]
  - DRUG INEFFECTIVE [None]
  - HYPOMANIA [None]
  - INSOMNIA [None]
